FAERS Safety Report 20520164 (Version 3)
Quarter: 2022Q2

REPORT INFORMATION
  Report Type: Report from Study
  Country: US (occurrence: US)
  Receive Date: 20220225
  Receipt Date: 20220419
  Transmission Date: 20220721
  Serious: Yes (Other)
  Sender: FDA-Public Use
  Company Number: US-BAYER-2022A026966

PATIENT
  Age: 71 Year
  Sex: Male

DRUGS (3)
  1. STIVARGA [Suspect]
     Active Substance: REGORAFENIB
     Indication: Colorectal cancer metastatic
     Dosage: 80 MG, QD (3 WKS ON, 1 WK OFF)
     Route: 048
  2. STIVARGA [Suspect]
     Active Substance: REGORAFENIB
     Indication: Rectal cancer
     Dosage: 40 MG, QD
     Route: 048
  3. STIVARGA [Suspect]
     Active Substance: REGORAFENIB
     Indication: Colorectal cancer metastatic
     Dosage: 160 MG, QD FOR 21 DAYS EVERY 28 DAYS
     Route: 048
     Dates: start: 20220301

REACTIONS (7)
  - Neuropathy peripheral [Not Recovered/Not Resolved]
  - Wound haemorrhage [Unknown]
  - Neuralgia [None]
  - Fatigue [Not Recovered/Not Resolved]
  - Pain [Unknown]
  - Dysphonia [Not Recovered/Not Resolved]
  - Off label use [None]
